FAERS Safety Report 6687431-4 (Version None)
Quarter: 2010Q2

REPORT INFORMATION
  Report Type: 
  Country: None (occurrence: None)
  Receive Date: 20100415
  Receipt Date: 20100406
  Transmission Date: 20101027
  Serious: Yes (Hospitalization)
  Sender: FDA-Public Use
  Company Number: 2010AL002017

PATIENT
  Age: 23 Year
  Sex: Female

DRUGS (2)
  1. DICLOFENAC SODIUM [Suspect]
     Indication: URINARY TRACT INFECTION
     Dosage: 150 MG;
  2. CIPROFLOXACIN [Concomitant]

REACTIONS (5)
  - COLITIS [None]
  - CONSTIPATION [None]
  - LARGE INTESTINE PERFORATION [None]
  - LOWER GASTROINTESTINAL HAEMORRHAGE [None]
  - MUCOSAL EROSION [None]
